FAERS Safety Report 5268136-3 (Version None)
Quarter: 2007Q1

REPORT INFORMATION
  Report Type: 
  Country: None (occurrence: None)
  Receive Date: 20070319
  Receipt Date: 20070306
  Transmission Date: 20070707
  Serious: Yes (Hospitalization, Other)
  Sender: FDA-Public Use
  Company Number: US-ELI_LILLY_AND_COMPANY-US200701000584

PATIENT
  Age: 29 Year
  Sex: Female
  Weight: 63.492 kg

DRUGS (6)
  1. ZYPREXA [Suspect]
     Indication: BIPOLAR DISORDER
     Dosage: 40 MG, UNK
     Route: 048
     Dates: start: 20040501, end: 20040501
  2. ZYPREXA [Suspect]
     Dosage: 10 MG, UNK
  3. ZYPREXA [Suspect]
     Dosage: 20 MG, UNK
     Dates: end: 20050301
  4. ZIPRASIDONE HCL [Concomitant]
     Dates: start: 20040423
  5. DIVALPROEX SODIUM [Concomitant]
     Route: 048
     Dates: start: 20040101
  6. PROPRANOLOL [Concomitant]
     Route: 048
     Dates: start: 20040501, end: 20050901

REACTIONS (7)
  - BLOOD CHOLESTEROL INCREASED [None]
  - DIABETES MELLITUS [None]
  - HYPERTENSION [None]
  - METABOLIC DISORDER [None]
  - OBESITY [None]
  - PRESCRIBED OVERDOSE [None]
  - WEIGHT INCREASED [None]
